FAERS Safety Report 15227973 (Version 1)
Quarter: 2018Q3

REPORT INFORMATION
  Report Type: Spontaneous
  Country: US (occurrence: US)
  Receive Date: 20180801
  Receipt Date: 20180801
  Transmission Date: 20181010
  Serious: No
  Sender: FDA-Public Use
  Company Number: US-BAYER-2018-140112

PATIENT
  Age: 3 Year
  Weight: 18 kg

DRUGS (1)
  1. CLARITIN [Suspect]
     Active Substance: LORATADINE
     Dosage: 5 DOSE
     Route: 065

REACTIONS (1)
  - Accidental exposure to product by child [Unknown]
